FAERS Safety Report 16985401 (Version 2)
Quarter: 2019Q4

REPORT INFORMATION
  Report Type: Spontaneous
  Country: FR (occurrence: FR)
  Receive Date: 20191101
  Receipt Date: 20191230
  Transmission Date: 20200122
  Serious: Yes (Other)
  Sender: FDA-Public Use
  Company Number: FR-EX USA HOLDINGS-EXHL20192421

PATIENT
  Age: 69 Year
  Sex: Male

DRUGS (1)
  1. CLOBETASOL PROPIONATE. [Suspect]
     Active Substance: CLOBETASOL PROPIONATE
     Indication: LICHEN SCLEROSUS
     Dosage: UNKNOWN
     Route: 061
     Dates: start: 2017

REACTIONS (6)
  - Drug ineffective for unapproved indication [None]
  - Secondary immunodeficiency [Unknown]
  - Malacoplakia [Unknown]
  - Papule [Unknown]
  - Condition aggravated [Unknown]
  - Product use issue [None]
